FAERS Safety Report 14921841 (Version 2)
Quarter: 2018Q2

REPORT INFORMATION
  Report Type: Spontaneous
  Country: AE (occurrence: AE)
  Receive Date: 20180522
  Receipt Date: 20180527
  Transmission Date: 20180711
  Serious: Yes (Other)
  Sender: FDA-Public Use
  Company Number: AE-AMGEN-ARESP2018058361

PATIENT
  Age: 40 Year
  Sex: Female

DRUGS (1)
  1. ENBREL [Suspect]
     Active Substance: ETANERCEPT
     Indication: RHEUMATOID ARTHRITIS
     Dosage: 50 MG, ONCE WEEKLY
     Route: 058
     Dates: start: 20180320, end: 201804

REACTIONS (1)
  - Bartholin^s cyst [Recovered/Resolved]

NARRATIVE: CASE EVENT DATE: 20180421
